FAERS Safety Report 8836626 (Version 2)
Quarter: 2013Q1

REPORT INFORMATION
  Report Type: Spontaneous
  Country: JP (occurrence: None)
  Receive Date: 20121010
  Receipt Date: 20121226
  Transmission Date: 20140127
  Serious: Yes (Other)
  Sender: FDA-Public Use
  Company Number: DSA_60057_2012

PATIENT
  Age: 63 Year
  Sex: Female

DRUGS (4)
  1. FLUOROURACIL (FLUOROURACIL) [Suspect]
     Indication: COLON CANCER
     Dosage: DF
     Dates: start: 201005
  2. OXALIPLATIN (OXALIPLATIN) [Suspect]
     Indication: COLON CANCER
     Dosage: DF
     Dates: start: 201005
  3. FOLINIC ACID [Suspect]
     Indication: COLON CANCER
     Dosage: DF
     Dates: start: 201005
  4. PANITUMUMAB [Suspect]
     Indication: COLON CANCER
     Dosage: DF
     Dates: start: 2010

REACTIONS (2)
  - Neutropenia [None]
  - Skin disorder [None]
